FAERS Safety Report 21907276 (Version 1)
Quarter: 2023Q1

REPORT INFORMATION
  Report Type: Report from Study
  Country: US (occurrence: US)
  Receive Date: 20230125
  Receipt Date: 20230125
  Transmission Date: 20230418
  Serious: Yes (Other)
  Sender: FDA-Public Use
  Company Number: US-BAUSCH-BL-2023-001124

PATIENT
  Age: 66 Year
  Sex: Female

DRUGS (16)
  1. XIFAXAN [Suspect]
     Active Substance: RIFAXIMIN
     Indication: Hepatic encephalopathy
     Dosage: 550 MG, 1 TAB/BID
     Route: 048
  2. BEVESPI AEROSPHERE [Concomitant]
     Active Substance: FORMOTEROL FUMARATE\GLYCOPYRROLATE
     Indication: Product used for unknown indication
     Dosage: 9 MCG-4.8 MCG/INH, BID, PRN, 2 PUFF
  3. CALCIUM CARBONATE [Concomitant]
     Active Substance: CALCIUM CARBONATE
     Indication: Product used for unknown indication
     Dosage: 1250MG, 1TAB/TID
     Route: 048
  4. CARVEDILOL [Concomitant]
     Active Substance: CARVEDILOL
     Indication: Portal hypertension
     Dosage: 12.5 MG, 1TAB/BID
     Route: 048
  5. CARVEDILOL [Concomitant]
     Active Substance: CARVEDILOL
     Indication: Varices oesophageal
  6. CARVEDILOL [Concomitant]
     Active Substance: CARVEDILOL
     Indication: Prophylaxis
  7. CHOLECALCIFEROL [Concomitant]
     Active Substance: CHOLECALCIFEROL
     Indication: Product used for unknown indication
     Dosage: 2000 IU, 1CAP/DAY
     Route: 048
  8. LACTULOSE [Concomitant]
     Active Substance: LACTULOSE
     Indication: Product used for unknown indication
     Dosage: 10G/15ML, DAILY
     Route: 048
  9. LEVOTHYROXINE [Concomitant]
     Active Substance: LEVOTHYROXINE
     Indication: Product used for unknown indication
     Dosage: 50 MICROGRAM, DAILY
     Route: 048
  10. LOSARTAN [Concomitant]
     Active Substance: LOSARTAN
     Indication: Product used for unknown indication
     Dosage: 100 MG, 1TAB/DAILY
     Route: 048
  11. PANTOPRAZOLE [Concomitant]
     Active Substance: PANTOPRAZOLE
     Indication: Product used for unknown indication
     Dosage: 40 MG, 1TAB/DAILY
     Route: 048
  12. SINGULAIR [Concomitant]
     Active Substance: MONTELUKAST SODIUM
     Indication: Product used for unknown indication
     Dosage: 10 MG, 1TAB/BEDTIME
     Route: 048
  13. TRADJENTA [Concomitant]
     Active Substance: LINAGLIPTIN
     Indication: Product used for unknown indication
     Dosage: 5 MG, 1TAB/DAILY
     Route: 048
  14. URSODIOL [Concomitant]
     Active Substance: URSODIOL
     Indication: Hepatic cirrhosis
     Dosage: 500 MG, 1TAB/BID
     Route: 048
  15. MODERNA COVID-19 VACCINE [Concomitant]
     Active Substance: ELASOMERAN
     Indication: Immunisation
     Dosage: SARS-COV-2-COVID-19 MRNA-1273 VAXMODERNA
     Dates: start: 20210110
  16. MODERNA COVID-19 VACCINE [Concomitant]
     Active Substance: ELASOMERAN
     Dosage: SARS-COV-2-COVID-19 MRNA-1273 VAXMODERNA
     Dates: start: 20210206

REACTIONS (7)
  - Haemoptysis [Unknown]
  - Parathyroid tumour benign [Unknown]
  - Carpal tunnel syndrome [Unknown]
  - Memory impairment [Unknown]
  - Hiatus hernia [Unknown]
  - Gastric disorder [Unknown]
  - Inability to afford medication [Unknown]
